FAERS Safety Report 4303597-5 (Version None)
Quarter: 2004Q1

REPORT INFORMATION
  Report Type: 
  Country: None (occurrence: None)
  Receive Date: 20040224
  Receipt Date: 20040224
  Transmission Date: 20041129
  Serious: Yes (Other)
  Sender: FDA-Public Use
  Company Number: None

PATIENT
  Sex: Female
  Weight: 54.4316 kg

DRUGS (1)
  1. ZOLOFT [Suspect]
     Indication: ANXIETY
     Dosage: 100 MG ONCE DAILY ORAL
     Route: 048

REACTIONS (1)
  - DRUG DEPENDENCE [None]
